FAERS Safety Report 9691316 (Version 4)
Quarter: 2013Q4

REPORT INFORMATION
  Report Type: Report from Study
  Country: US (occurrence: US)
  Receive Date: 20131115
  Receipt Date: 20131226
  Transmission Date: 20140711
  Serious: Yes (Other)
  Sender: FDA-Public Use
  Company Number: US-PURDUE-USA-2013-0106485

PATIENT
  Age: 71 Year
  Sex: Female

DRUGS (3)
  1. OXY CR TAB [Suspect]
     Indication: PAIN
     Dosage: 60 MG, TID
     Route: 048
  2. OXY CR TAB [Suspect]
     Indication: INTERVERTEBRAL DISC DEGENERATION
  3. NORCO [Concomitant]
     Indication: PAIN
     Dosage: UNK
     Route: 065

REACTIONS (14)
  - Flatback syndrome [Unknown]
  - Drug withdrawal syndrome [Unknown]
  - Neuralgia [Unknown]
  - Lymphoedema [Unknown]
  - Wrist fracture [Recovered/Resolved]
  - Gait disturbance [Unknown]
  - Pain [Unknown]
  - Activities of daily living impaired [Unknown]
  - Intentional drug misuse [Unknown]
  - Diarrhoea [Unknown]
  - Abdominal discomfort [Unknown]
  - Drug effect decreased [Unknown]
  - Memory impairment [Not Recovered/Not Resolved]
  - Unevaluable event [Unknown]
